FAERS Safety Report 23131525 (Version 6)
Quarter: 2024Q1

REPORT INFORMATION
  Report Type: Report from Study
  Country: US (occurrence: US)
  Receive Date: 20231031
  Receipt Date: 20240214
  Transmission Date: 20240409
  Serious: Yes (Hospitalization, Other)
  Sender: FDA-Public Use
  Company Number: US-GILEAD-2023-0649136

PATIENT
  Age: 22 Year
  Sex: Female

DRUGS (4)
  1. AMBRISENTAN [Suspect]
     Active Substance: AMBRISENTAN
     Indication: Pulmonary arterial hypertension
     Dosage: 10 MG, QD
     Route: 065
     Dates: start: 20220323
  2. ADEMPAS [Concomitant]
     Active Substance: RIOCIGUAT
  3. REMODULIN [Concomitant]
     Active Substance: TREPROSTINIL
  4. MIDODRINE [Concomitant]
     Active Substance: MIDODRINE

REACTIONS (13)
  - Thyroid disorder [Unknown]
  - Pneumonia [Unknown]
  - Graves^ disease [Unknown]
  - Thyrotoxic crisis [Unknown]
  - Weight decreased [Unknown]
  - Hypotension [Unknown]
  - Injection site erythema [Unknown]
  - Vomiting [Not Recovered/Not Resolved]
  - Haemoptysis [Recovered/Resolved]
  - Cough [Unknown]
  - Gait inability [Unknown]
  - Dyspnoea [Not Recovered/Not Resolved]
  - Retching [Unknown]

NARRATIVE: CASE EVENT DATE: 20230501
